FAERS Safety Report 8058830-3 (Version None)
Quarter: 2012Q1

REPORT INFORMATION
  Report Type: 
  Country: None (occurrence: None)
  Receive Date: 20120120
  Receipt Date: 20111207
  Transmission Date: 20120608
  Serious: No
  Sender: FDA-Public Use
  Company Number: US-BRISTOL-MYERS SQUIBB COMPANY-16279176

PATIENT

DRUGS (1)
  1. YERVOY [Suspect]
     Dosage: 1 DF = 2 DOSE

REACTIONS (4)
  - HEADACHE [None]
  - LIVER FUNCTION TEST ABNORMAL [None]
  - DERMATITIS [None]
  - THYROID FUNCTION TEST ABNORMAL [None]
